FAERS Safety Report 5896270-3 (Version None)
Quarter: 2008Q3

REPORT INFORMATION
  Report Type: 
  Country: None (occurrence: None)
  Receive Date: 20080923
  Receipt Date: 20080908
  Transmission Date: 20090109
  Serious: Yes (Death, Other)
  Sender: FDA-Public Use
  Company Number: KADN20080338

PATIENT
  Age: 43 Year
  Sex: Male

DRUGS (1)
  1. MORPHINE [Suspect]
     Dates: end: 20050101

REACTIONS (4)
  - ANION GAP INCREASED [None]
  - CARDIAC ARREST [None]
  - DRUG TOXICITY [None]
  - NO THERAPEUTIC RESPONSE [None]
